FAERS Safety Report 10862299 (Version 1)
Quarter: 2015Q1

REPORT INFORMATION
  Report Type: Report from Study
  Country: NZ (occurrence: NZ)
  Receive Date: 20150224
  Receipt Date: 20150224
  Transmission Date: 20150721
  Serious: Yes (Disabling)
  Sender: FDA-Public Use
  Company Number: PHHY2015NZ020681

PATIENT
  Age: 17 Year
  Sex: Female

DRUGS (5)
  1. RISPERIDONE. [Concomitant]
     Active Substance: RISPERIDONE
     Indication: PRODUCT USED FOR UNKNOWN INDICATION
     Dosage: 2 MG, MANE
     Route: 048
     Dates: end: 201411
  2. CLOZARIL [Suspect]
     Active Substance: CLOZAPINE
     Indication: SCHIZOPHRENIA
  3. LAXOL [Concomitant]
     Active Substance: CASTOR OIL
     Indication: CONSTIPATION
     Dosage: 2 DF, QD
     Route: 048
     Dates: end: 201411
  4. CLOZARIL [Suspect]
     Active Substance: CLOZAPINE
     Indication: PSYCHOTIC DISORDER
     Dosage: 200 MG, NOCTE
     Route: 048
     Dates: start: 201404, end: 201411
  5. SERTRALINE [Concomitant]
     Active Substance: SERTRALINE HYDROCHLORIDE
     Indication: DEPRESSION
     Dosage: 150 MG, MANE
     Route: 048
     Dates: end: 201411

REACTIONS (4)
  - Product use issue [Unknown]
  - Incontinence [Not Recovered/Not Resolved]
  - Drug administered to patient of inappropriate age [Unknown]
  - Sedation [Not Recovered/Not Resolved]

NARRATIVE: CASE EVENT DATE: 201404
